FAERS Safety Report 6742512-1 (Version None)
Quarter: 2010Q2

REPORT INFORMATION
  Report Type: 
  Country: None (occurrence: None)
  Receive Date: 20100524
  Receipt Date: 20100514
  Transmission Date: 20101027
  Serious: Yes (Other)
  Sender: FDA-Public Use
  Company Number: 1000013983

PATIENT
  Age: 57 Year
  Sex: Female

DRUGS (3)
  1. ESCITALOPRAM [Suspect]
     Indication: DEPRESSION
  2. ESCITALOPRAM [Suspect]
     Indication: OBSESSIVE THOUGHTS
  3. ESCITALOPRAM [Suspect]
     Indication: TACHYPHRENIA

REACTIONS (3)
  - COUGH [None]
  - PHARYNGEAL OEDEMA [None]
  - THROAT IRRITATION [None]
